FAERS Safety Report 7329962-X (Version None)
Quarter: 2011Q1

REPORT INFORMATION
  Report Type: 
  Country: None (occurrence: None)
  Receive Date: 20110303
  Receipt Date: 20110228
  Transmission Date: 20110831
  Serious: Yes (Other)
  Sender: FDA-Public Use
  Company Number: US-BAYER-2011-019075

PATIENT
  Sex: Female

DRUGS (1)
  1. YAZ [Suspect]
     Indication: OSTEOPOROSIS PROPHYLAXIS
     Dosage: UNK
     Route: 048
     Dates: end: 20101027

REACTIONS (2)
  - UTERINE LEIOMYOMA [None]
  - HIRSUTISM [None]
